FAERS Safety Report 5444047-5 (Version None)
Quarter: 2007Q3

REPORT INFORMATION
  Report Type: 
  Country: None (occurrence: None)
  Receive Date: 20070905
  Receipt Date: 20070823
  Transmission Date: 20080115
  Serious: Yes (Other)
  Sender: FDA-Public Use
  Company Number: US-MERCK-0708USA05860

PATIENT
  Sex: Female

DRUGS (2)
  1. ZIDOVUDINE [Suspect]
     Route: 065
  2. INDINAVIR [Suspect]
     Indication: HIV INFECTION
     Route: 065

REACTIONS (2)
  - DRUG EXPOSURE DURING PREGNANCY [None]
  - PREMATURE BABY [None]
